FAERS Safety Report 22345530 (Version 5)
Quarter: 2024Q4

REPORT INFORMATION
  Report Type: Spontaneous
  Country: US (occurrence: US)
  Receive Date: 20230519
  Receipt Date: 20241213
  Transmission Date: 20250115
  Serious: Yes (Other)
  Sender: PFIZER
  Company Number: US-PFIZER INC-202300193634

PATIENT
  Age: 62 Year
  Sex: Male
  Weight: 102.04 kg

DRUGS (4)
  1. DEPO-TESTOSTERONE [Suspect]
     Active Substance: TESTOSTERONE CYPIONATE
     Indication: Testicular disorder
     Dosage: 1 ML
  2. DEPO-TESTOSTERONE [Suspect]
     Active Substance: TESTOSTERONE CYPIONATE
     Dosage: 1.2 ML
  3. DEPO-TESTOSTERONE [Suspect]
     Active Substance: TESTOSTERONE CYPIONATE
     Dosage: 1.5 ML, WEEKLY
  4. DEPO-TESTOSTERONE [Suspect]
     Active Substance: TESTOSTERONE CYPIONATE
     Dosage: 1 ML

REACTIONS (5)
  - Venipuncture [Unknown]
  - Hernia [Unknown]
  - Blood test abnormal [Unknown]
  - Haemoglobin increased [Unknown]
  - Red blood cell count increased [Unknown]
